FAERS Safety Report 10595812 (Version 1)
Quarter: 2014Q4

REPORT INFORMATION
  Report Type: Spontaneous
  Country: US (occurrence: US)
  Receive Date: 20141120
  Receipt Date: 20141120
  Transmission Date: 20150529
  Serious: Yes (Other)
  Sender: FDA-Public Use
  Company Number: US-PFIZER INC-2014316341

PATIENT
  Age: 56 Year
  Sex: Female
  Weight: 69 kg

DRUGS (3)
  1. PREMARIN [Concomitant]
     Active Substance: ESTROGENS, CONJUGATED
     Dosage: 0.625 MG, 1X/DAY
     Route: 048
  2. LYRICA [Suspect]
     Active Substance: PREGABALIN
     Indication: NEUROPATHY PERIPHERAL
     Dosage: 100 MG, 1X/DAY AT NIGHT
     Route: 048
     Dates: start: 20141111
  3. SYNTHROID [Concomitant]
     Active Substance: LEVOTHYROXINE SODIUM
     Dosage: 0.075 ?G, 1X/DAY
     Route: 048

REACTIONS (8)
  - Abasia [Recovering/Resolving]
  - Head discomfort [Unknown]
  - Impaired driving ability [Unknown]
  - Somnolence [Recovering/Resolving]
  - Disorientation [Recovering/Resolving]
  - Impaired work ability [Recovering/Resolving]
  - Feeling drunk [Recovering/Resolving]
  - Confusional state [Unknown]

NARRATIVE: CASE EVENT DATE: 20141111
